FAERS Safety Report 9859376 (Version 1)
Quarter: 2014Q1

REPORT INFORMATION
  Report Type: Spontaneous
  Country: ES (occurrence: ES)
  Receive Date: 20140131
  Receipt Date: 20140131
  Transmission Date: 20141002
  Serious: Yes (Other)
  Sender: FDA-Public Use
  Company Number: ES-JNJFOC-20140117857

PATIENT
  Age: 81 Year
  Sex: Female

DRUGS (9)
  1. TRAMADOL HYDROCHLORIDE [Suspect]
     Indication: BACK PAIN
     Route: 048
  2. TRAMADOL HYDROCHLOREIDE/PARACETAMOL [Suspect]
     Indication: BACK PAIN
     Route: 065
  3. ESCITALOPRAM [Interacting]
     Indication: DEPRESSION
     Route: 065
  4. ETORICOXIB [Interacting]
     Indication: BACK PAIN
     Route: 065
  5. DEFLAZACORT [Concomitant]
     Indication: ASTHMA
     Route: 065
  6. SALBUTAMOL [Concomitant]
     Indication: ASTHMA
     Route: 065
  7. MONTELUKAST [Concomitant]
     Indication: ASTHMA
     Route: 065
  8. ATORVASTATIN [Concomitant]
     Indication: DYSLIPIDAEMIA
     Route: 065
  9. OMEPRAZOLE [Concomitant]
     Indication: PROPHYLAXIS AGAINST GASTROINTESTINAL ULCER
     Route: 065

REACTIONS (3)
  - Drug interaction [Unknown]
  - Aphasia [Unknown]
  - Hemianopia [Unknown]
